FAERS Safety Report 9869624 (Version 1)
Quarter: 2014Q1

REPORT INFORMATION
  Report Type: Spontaneous
  Country: US (occurrence: US)
  Receive Date: 20140205
  Receipt Date: 20140205
  Transmission Date: 20141002
  Serious: No
  Sender: FDA-Public Use
  Company Number: US-009507513-1401USA011163

PATIENT
  Sex: Female
  Weight: 71.66 kg

DRUGS (1)
  1. NEXPLANON [Suspect]
     Indication: CONTRACEPTION
     Dosage: 1 ROD UP TO 3 YEARS, IMPLANT LEFT ARM
     Route: 059
     Dates: start: 20130829

REACTIONS (4)
  - Haemorrhage [Unknown]
  - Alopecia [Unknown]
  - Weight increased [Unknown]
  - Headache [Unknown]
